FAERS Safety Report 8020370-5 (Version None)
Quarter: 2012Q1

REPORT INFORMATION
  Report Type: 
  Country: None (occurrence: None)
  Receive Date: 20120103
  Receipt Date: 20111222
  Transmission Date: 20120608
  Serious: Yes (Hospitalization, Other)
  Sender: FDA-Public Use
  Company Number: US-ELI_LILLY_AND_COMPANY-US201008002357

PATIENT
  Sex: Female

DRUGS (13)
  1. FORTEO [Suspect]
     Dosage: 20 UG, QD
  2. CALCIUM ACETATE [Concomitant]
  3. FORTEO [Suspect]
     Indication: OSTEOPOROSIS
     Dosage: 20 UG, DAILY (1/D)
     Dates: start: 20090101
  4. ARICEPT [Concomitant]
     Dosage: 23 MG, QD
  5. ZOCOR [Concomitant]
     Dosage: 40 MG, QD
  6. VITAMIN TAB [Concomitant]
  7. NAMENDA [Concomitant]
     Dosage: 10 MG, UNKNOWN
  8. XALATAN [Concomitant]
  9. TIMOPTIC [Concomitant]
  10. SYNTHROID [Concomitant]
     Dosage: 0.05 MG, QD
  11. ARICEPT [Concomitant]
     Dosage: 10 MG, UNK
  12. DIOVAN [Concomitant]
     Dosage: 80 MG, QD
  13. OSCAL                              /00108001/ [Concomitant]

REACTIONS (10)
  - HYPOTENSION [None]
  - RENAL DISORDER [None]
  - CARDIAC DISORDER [None]
  - DEMENTIA [None]
  - URINARY TRACT INFECTION [None]
  - LETHARGY [None]
  - DIET REFUSAL [None]
  - CONDITION AGGRAVATED [None]
  - VENTRICULAR EXTRASYSTOLES [None]
  - EXERCISE LACK OF [None]
